FAERS Safety Report 10016737 (Version 3)
Quarter: 2014Q2

REPORT INFORMATION
  Report Type: Spontaneous
  Country: GB (occurrence: GB)
  Receive Date: 20140318
  Receipt Date: 20140429
  Transmission Date: 20141212
  Serious: Yes (Hospitalization, Other)
  Sender: FDA-Public Use
  Company Number: PHFR2014GB001799

PATIENT
  Sex: Male

DRUGS (6)
  1. CLOZARIL [Suspect]
     Dosage: UNK
     Route: 048
     Dates: start: 20080414
  2. CLOZARIL [Suspect]
     Dosage: 475 MG, DAILY
     Route: 048
  3. AMISULPRIDE [Concomitant]
     Indication: SCHIZOPHRENIA
     Dosage: 600 MG DAILY
     Route: 048
  4. GABAPENTINE [Concomitant]
     Indication: PAIN
     Dosage: 2.4 MG, DAILY (7 YEARS)
     Route: 048
  5. GABAPENTINE [Concomitant]
     Indication: SCIATICA
  6. CLONAZEPAM [Concomitant]
     Indication: ANXIETY
     Dosage: 1.5 MG, DAILY
     Route: 048

REACTIONS (2)
  - Lower respiratory tract infection [Recovered/Resolved]
  - Chronic obstructive pulmonary disease [Not Recovered/Not Resolved]
